FAERS Safety Report 5496866-7 (Version None)
Quarter: 2007Q4

REPORT INFORMATION
  Report Type: 
  Country: None (occurrence: None)
  Receive Date: 20071025
  Receipt Date: 20070829
  Transmission Date: 20080405
  Serious: No
  Sender: FDA-Public Use
  Company Number: A0677358A

PATIENT
  Age: 61 Year
  Sex: Female

DRUGS (3)
  1. ADVAIR DISKUS 100/50 [Suspect]
     Dosage: 1PUFF TWICE PER DAY
     Route: 055
     Dates: start: 20070101
  2. BENADRYL [Concomitant]
     Dosage: 1TAB SIX TIMES PER DAY
     Route: 048
  3. NADOLOL [Concomitant]

REACTIONS (3)
  - DIZZINESS [None]
  - DYSPHONIA [None]
  - DYSPNOEA [None]
